FAERS Safety Report 21531260 (Version 1)
Quarter: 2022Q4

REPORT INFORMATION
  Report Type: Report from Study
  Country: US (occurrence: US)
  Receive Date: 20221031
  Receipt Date: 20221031
  Transmission Date: 20230113
  Serious: Yes (Hospitalization)
  Sender: FDA-Public Use
  Company Number: US-ALLERGAN-2235725US

PATIENT
  Sex: Female

DRUGS (2)
  1. UBROGEPANT [Suspect]
     Active Substance: UBROGEPANT
     Indication: Migraine
     Dosage: 50 MG, PRN
     Route: 048
  2. RESTASIS [Suspect]
     Active Substance: CYCLOSPORINE
     Indication: Product used for unknown indication
     Dosage: 2 GTT, BID
     Route: 047

REACTIONS (2)
  - Hospitalisation [Unknown]
  - Illness [Unknown]
